FAERS Safety Report 26108805 (Version 1)
Quarter: 2025Q4

REPORT INFORMATION
  Report Type: Spontaneous
  Country: EU (occurrence: EU)
  Receive Date: 20251201
  Receipt Date: 20251201
  Transmission Date: 20260118
  Serious: Yes (Hospitalization)
  Sender: JOHNSON AND JOHNSON
  Company Number: EU-JNJFOC-20251173561

PATIENT
  Weight: 70 kg

DRUGS (2)
  1. AMIVANTAMAB [Suspect]
     Active Substance: AMIVANTAMAB
     Indication: Non-small cell lung cancer
     Route: 065
  2. AMIVANTAMAB [Suspect]
     Active Substance: AMIVANTAMAB
     Route: 065

REACTIONS (2)
  - Anaphylactic shock [Unknown]
  - Product dose omission issue [Unknown]
